FAERS Safety Report 4603005-0 (Version None)
Quarter: 2005Q1

REPORT INFORMATION
  Report Type: 
  Country: None (occurrence: None)
  Receive Date: 20050307
  Receipt Date: 20050218
  Transmission Date: 20050727
  Serious: Yes (Other)
  Sender: FDA-Public Use
  Company Number: 2005033089

PATIENT
  Age: 34 Year
  Sex: Female

DRUGS (4)
  1. DEPO-MEDROL [Suspect]
     Indication: ANALGESIC EFFECT
     Dosage: 40/10 MG/ML (ONCE), EPIDURAL
     Route: 008
     Dates: start: 20010922, end: 20010922
  2. OXAZEPAM [Concomitant]
  3. ACETAMINOPHEN [Concomitant]
  4. GABAPENTIN [Concomitant]

REACTIONS (25)
  - ANOREXIA [None]
  - ARACHNOIDITIS [None]
  - AUTONOMIC NERVOUS SYSTEM IMBALANCE [None]
  - BURNING SENSATION [None]
  - CONGENITAL KYPHOSCOLIOSIS [None]
  - CONSTIPATION [None]
  - DERMATITIS [None]
  - EYE IRRITATION [None]
  - FATIGUE [None]
  - HYPERHIDROSIS [None]
  - HYPERSENSITIVITY [None]
  - HYPOAESTHESIA [None]
  - IMMUNE SYSTEM DISORDER [None]
  - MEDICATION ERROR [None]
  - MICTURITION DISORDER [None]
  - MUCOSAL DRYNESS [None]
  - NEURALGIA [None]
  - NEUROPATHIC PAIN [None]
  - OEDEMA [None]
  - PARAESTHESIA [None]
  - PERIPHERAL SENSORY NEUROPATHY [None]
  - PHARYNGOLARYNGEAL PAIN [None]
  - PURPURA [None]
  - SENSORY DISTURBANCE [None]
  - SKIN WARM [None]
